FAERS Safety Report 26042221 (Version 2)
Quarter: 2025Q4

REPORT INFORMATION
  Report Type: Report from Study
  Country: EU (occurrence: EU)
  Receive Date: 20251113
  Receipt Date: 20251119
  Transmission Date: 20260117
  Serious: Yes (Other)
  Sender: ABBVIE
  Company Number: EU-ABBVIE-6532545

PATIENT
  Age: 76 Year
  Sex: Female

DRUGS (5)
  1. CARBIDOPA\LEVODOPA [Suspect]
     Active Substance: CARBIDOPA\LEVODOPA
     Indication: Parkinson^s disease
     Dosage: 240MG/ML FOSLEVODOPA + 12MG/ML FOSCARBIDOPA ? INITIAL DOSES: LOAD 0.9 ML; HIGH 0.19 ML/H, BASE 0....
     Route: 050
     Dates: start: 20251003
  2. CARBIDOPA\LEVODOPA [Suspect]
     Active Substance: CARBIDOPA\LEVODOPA
     Dosage: 240MG/ML FOSLEVODOPA + 12MG/ML FOSCARBIDOP A - DOSES: LOADING 0.9 ML; HIGH DOSE:0.36 ML/H; BASE D...
     Route: 050
     Dates: start: 202510, end: 20251031
  3. CARBIDOPA\LEVODOPA [Suspect]
     Active Substance: CARBIDOPA\LEVODOPA
     Dosage: 240MG/ML FOSLEVODOPA + 12MG/ML FOSCARBIDOPA - DOSES: LOADING 0.9 ML; HIGH ?DOSE: 0.39ML/H; BASE D...
     Route: 050
     Dates: start: 20251031, end: 20251106
  4. CARBIDOPA\LEVODOPA [Suspect]
     Active Substance: CARBIDOPA\LEVODOPA
     Dosage: 240MG/ML FOSLEVODOPA + 12MG/ML FOSCARBIDOPA - DOSES: LOADING 0.9 ML; HIGH DOSE: 0.55ML/H; BASE DO...
     Route: 050
     Dates: start: 20251106, end: 20251114
  5. CARBIDOPA\LEVODOPA [Suspect]
     Active Substance: CARBIDOPA\LEVODOPA
     Dosage: 240MG/ML + 12MG/ML, DOSES: LOADING 0.9 ML, HIGH DOSE: 0.70ML/H; BASE DOSE: 0.67ML/H AND LOW DOSE:...
     Route: 050
     Dates: start: 20251114

REACTIONS (3)
  - On and off phenomenon [Not Recovered/Not Resolved]
  - Stoma site discharge [Recovering/Resolving]
  - Device use issue [Unknown]

NARRATIVE: CASE EVENT DATE: 20251001
